FAERS Safety Report 5338974-7 (Version None)
Quarter: 2007Q2

REPORT INFORMATION
  Report Type: 
  Country: None (occurrence: None)
  Receive Date: 20070404
  Receipt Date: 20060706
  Transmission Date: 20071010
  Serious: Yes (Other)
  Sender: FDA-Public Use
  Company Number: HQWYE772511JUL06

PATIENT
  Age: 48 Year
  Sex: Female
  Weight: 75.36 kg

DRUGS (2)
  1. ALAVERT [Suspect]
     Indication: SINUS DISORDER
     Dosage: SEE IMAGE
     Route: 048
  2. ALAVERT [Suspect]
     Indication: SINUS DISORDER
     Dosage: SEE IMAGE
     Route: 048
     Dates: start: 20060501

REACTIONS (1)
  - NEPHROLITHIASIS [None]
